FAERS Safety Report 4296756-1 (Version None)
Quarter: 2004Q1

REPORT INFORMATION
  Report Type: 
  Country: None (occurrence: None)
  Receive Date: 20040126
  Receipt Date: 20030925
  Transmission Date: 20041129
  Serious: No
  Sender: FDA-Public Use
  Company Number: USA030946359

PATIENT
  Age: 48 Year
  Sex: Male
  Weight: 75 kg

DRUGS (4)
  1. STRATTERA [Suspect]
     Indication: SOMNOLENCE
     Dosage: 40 MG/DAY
     Dates: start: 20030905
  2. EFFEXOR (VENLAPAXINE HYDROCHLORIDE) [Concomitant]
  3. EPHEDRA [Concomitant]
  4. CAFFEINE [Concomitant]

REACTIONS (7)
  - BALANCE DISORDER [None]
  - BLOOD PRESSURE INCREASED [None]
  - HEART RATE INCREASED [None]
  - MIDDLE INSOMNIA [None]
  - MUSCLE CRAMP [None]
  - NAUSEA [None]
  - PSYCHOMOTOR HYPERACTIVITY [None]
